FAERS Safety Report 7630630-5 (Version None)
Quarter: 2011Q3

REPORT INFORMATION
  Report Type: 
  Country: None (occurrence: None)
  Receive Date: 20110722
  Receipt Date: 20110711
  Transmission Date: 20111222
  Serious: Yes (Other)
  Sender: FDA-Public Use
  Company Number: US-ELI_LILLY_AND_COMPANY-US201107003940

PATIENT
  Sex: Male

DRUGS (3)
  1. WARFARIN SODIUM [Concomitant]
  2. CYMBALTA [Suspect]
     Indication: DEPRESSION
     Dosage: 30 MG, QD
     Dates: start: 20100101, end: 20110601
  3. CYMBALTA [Suspect]
     Dosage: 30 MG, BID
     Dates: start: 20110601, end: 20110708

REACTIONS (6)
  - LOSS OF CONSCIOUSNESS [None]
  - MIGRAINE [None]
  - VOMITING [None]
  - FALL [None]
  - NAUSEA [None]
  - RETCHING [None]
